FAERS Safety Report 8415518-4 (Version None)
Quarter: 2012Q2

REPORT INFORMATION
  Report Type: 
  Country: None (occurrence: None)
  Receive Date: 20120606
  Receipt Date: 20120529
  Transmission Date: 20120825
  Serious: Yes (Hospitalization)
  Sender: FDA-Public Use
  Company Number: US-BAYER-2012-010503

PATIENT
  Age: 43 Year
  Sex: Female
  Weight: 72.562 kg

DRUGS (18)
  1. ZOFRAN [Concomitant]
     Route: 042
  2. TRAZODONE HCL [Concomitant]
  3. NEXIUM [Concomitant]
     Dosage: 40 MG, UNK
     Route: 048
     Dates: start: 20070221, end: 20070830
  4. TRAZODONE HCL [Concomitant]
     Dosage: 100 MG, UNK
     Route: 048
     Dates: start: 20061101, end: 20070812
  5. YAZ [Suspect]
     Indication: CONTRACEPTION
     Dosage: UNK
     Dates: start: 20070601, end: 20070901
  6. CYMBALTA [Concomitant]
     Dosage: 60 MG, UNK
     Route: 048
     Dates: start: 20070407, end: 20110711
  7. DEPAKOTE [Concomitant]
     Dosage: 250 MG, UNK
     Route: 048
     Dates: start: 20070616, end: 20070816
  8. ACYCLOVIR [Concomitant]
  9. TRAZODONE HCL [Concomitant]
     Dosage: 100 MG, UNK
     Dates: start: 20061101, end: 20070812
  10. CYMBALTA [Concomitant]
     Dosage: 60 MG, UNK
     Route: 048
     Dates: start: 20070729, end: 20070830
  11. CARISOPRODOL [Concomitant]
     Dosage: 350 MG, UNK
     Route: 048
     Dates: start: 20070828
  12. DILAUDID [Concomitant]
  13. YASMIN [Suspect]
     Indication: CONTRACEPTION
     Dosage: UNK
     Dates: start: 20030401, end: 20050201
  14. MUCINEX [Concomitant]
  15. ROCEPHIN [Concomitant]
  16. DEPAKOTE [Concomitant]
     Dosage: 250 MG, UNK
     Route: 048
     Dates: start: 20061112, end: 20080821
  17. NEXIUM [Concomitant]
     Dosage: 40 MG, UNK
     Route: 048
     Dates: start: 20070617, end: 20070830
  18. GUAIFENEX PSE [Concomitant]
     Dosage: UNK
     Route: 048
     Dates: start: 20070828

REACTIONS (7)
  - INJURY [None]
  - CEREBRAL INFARCTION [None]
  - PAIN [None]
  - ANXIETY [None]
  - EMOTIONAL DISTRESS [None]
  - INTRACRANIAL VENOUS SINUS THROMBOSIS [None]
  - GENERAL PHYSICAL HEALTH DETERIORATION [None]
